FAERS Safety Report 5120169-3 (Version None)
Quarter: 2006Q4

REPORT INFORMATION
  Report Type: 
  Country: None (occurrence: None)
  Receive Date: 20061002
  Receipt Date: 20061002
  Transmission Date: 20070319
  Serious: Yes (Hospitalization)
  Sender: FDA-Public Use
  Company Number: None

PATIENT
  Age: 61 Year
  Sex: Male

DRUGS (2)
  1. ASA 25MG [Suspect]
     Indication: CEREBROVASCULAR DISORDER
     Dosage: 25/200 MG BID PO
     Route: 048
     Dates: start: 20060315, end: 20060403
  2. DIPYRIDAMOLE [Suspect]

REACTIONS (2)
  - GINGIVAL BLEEDING [None]
  - PLATELET FUNCTION TEST ABNORMAL [None]
